FAERS Safety Report 11774889 (Version 1)
Quarter: 2015Q4

REPORT INFORMATION
  Report Type: Spontaneous
  Country: JP (occurrence: JP)
  Receive Date: 20151124
  Receipt Date: 20151124
  Transmission Date: 20160304
  Serious: Yes (Other)
  Sender: FDA-Public Use
  Company Number: JP-BAYER-2015-466306

PATIENT
  Age: 74 Year
  Sex: Male

DRUGS (2)
  1. BAYASPIRIN [Suspect]
     Active Substance: ASPIRIN
     Route: 048
  2. HYDREA [Suspect]
     Active Substance: HYDROXYUREA
     Route: 048

REACTIONS (1)
  - Erythema multiforme [None]
